FAERS Safety Report 13849967 (Version 1)
Quarter: 2017Q3

REPORT INFORMATION
  Report Type: Spontaneous
  Country: US (occurrence: US)
  Receive Date: 20170809
  Receipt Date: 20170809
  Transmission Date: 20171127
  Serious: Yes (Other)
  Sender: FDA-Public Use
  Company Number: US-INTERPRAG-PM-OCA2017-00721

PATIENT

DRUGS (9)
  1. URSODIOL. [Concomitant]
     Active Substance: URSODIOL
  2. LISINOPRIL. [Concomitant]
     Active Substance: LISINOPRIL
  3. AMOXICILLIN AND CLAVULA. POTASSIUM /01000301/ [Concomitant]
  4. FERROUS SULFATE. [Concomitant]
     Active Substance: FERROUS SULFATE
  5. WARFARIN [Suspect]
     Active Substance: WARFARIN
     Dosage: UNK
  6. PANTOPRAZOLE [Concomitant]
     Active Substance: PANTOPRAZOLE
  7. OCALIVA [Suspect]
     Active Substance: OBETICHOLIC ACID
     Indication: BILIARY CIRRHOSIS PRIMARY
     Dosage: 5 MG, QD
     Route: 048
     Dates: start: 20170706
  8. ATORVASTATIN [Concomitant]
     Active Substance: ATORVASTATIN
  9. GLIPIZIDE. [Concomitant]
     Active Substance: GLIPIZIDE

REACTIONS (1)
  - International normalised ratio increased [Unknown]

NARRATIVE: CASE EVENT DATE: 201707
